FAERS Safety Report 9308714 (Version 2)
Quarter: 2013Q2

REPORT INFORMATION
  Report Type: Spontaneous
  Country: NZ (occurrence: NZ)
  Receive Date: 20130524
  Receipt Date: 20130524
  Transmission Date: 20140414
  Serious: Yes (Death, Other)
  Sender: FDA-Public Use
  Company Number: PHHY2013NZ050169

PATIENT
  Age: 20 Year
  Sex: Female

DRUGS (6)
  1. VALPROIC ACID [Suspect]
     Indication: CONVULSION
     Dosage: 800 MG, STAT
     Route: 042
  2. VALPROIC ACID [Suspect]
     Dosage: 800 MG, 12 H LATER
     Route: 042
  3. RITUXIMAB [Concomitant]
     Dosage: 1 G, UNK
     Route: 042
  4. METHYLPREDNISOLONE [Concomitant]
     Dosage: 100 MG, UNK
     Route: 042
  5. HYDROXYCHLOROQUINE [Concomitant]
     Indication: SYSTEMIC LUPUS ERYTHEMATOSUS
  6. PREDNISONE [Concomitant]
     Indication: SYSTEMIC LUPUS ERYTHEMATOSUS

REACTIONS (15)
  - Systemic lupus erythematosus [Fatal]
  - Central nervous system necrosis [Fatal]
  - Ischaemic neuropathy [Fatal]
  - Glomerulonephritis proliferative [Fatal]
  - Diffuse alveolar damage [Fatal]
  - Glomerulosclerosis [Fatal]
  - Axonal neuropathy [Fatal]
  - Nerve injury [Fatal]
  - Cerebral calcification [Fatal]
  - Acute respiratory distress syndrome [Unknown]
  - Pneumonia haemophilus [Unknown]
  - Respiratory disorder [Unknown]
  - Encephalopathy [Unknown]
  - Convulsion [Unknown]
  - Hyperammonaemia [Unknown]
